FAERS Safety Report 12727754 (Version 2)
Quarter: 2016Q3

REPORT INFORMATION
  Report Type: Other
  Country: None (occurrence: RU)
  Receive Date: 20160909
  Receipt Date: 20160909
  Transmission Date: 20161109
  Serious: Yes (Hospitalization)
  Sender: FDA-Public Use
  Company Number: RU-MERCK KGAA-1057201

PATIENT

DRUGS (1)
  1. NOVOTHYROX [Suspect]
     Active Substance: LEVOTHYROXINE SODIUM

REACTIONS (9)
  - Tachycardia [None]
  - Speech disorder developmental [None]
  - Blood thyroid stimulating hormone increased [None]
  - Dysgraphia [None]
  - Asthenia [None]
  - Dyslexia [None]
  - Sleep disorder [None]
  - Arrhythmia [None]
  - Product counterfeit [None]
